FAERS Safety Report 4409548-7 (Version None)
Quarter: 2004Q3

REPORT INFORMATION
  Report Type: 
  Country: None (occurrence: None)
  Receive Date: 20040723
  Receipt Date: 20040712
  Transmission Date: 20050211
  Serious: Yes (Hospitalization)
  Sender: FDA-Public Use
  Company Number: 2004UW14428

PATIENT
  Age: 51 Year
  Sex: Male

DRUGS (4)
  1. ELAVIL [Suspect]
     Indication: NEUROPATHIC PAIN
     Dosage: 50 MG PO
     Route: 048
     Dates: start: 20040526, end: 20040609
  2. GABAPENTIN [Concomitant]
  3. LANSOPRAZOLE [Concomitant]
  4. SPIRONOLACTONE [Concomitant]

REACTIONS (5)
  - ALCOHOL USE [None]
  - ENCEPHALOPATHY [None]
  - HEPATIC FAILURE [None]
  - SEPSIS [None]
  - SOMNOLENCE [None]
